FAERS Safety Report 5289320-9 (Version None)
Quarter: 2007Q2

REPORT INFORMATION
  Report Type: 
  Country: None (occurrence: None)
  Receive Date: 20070404
  Receipt Date: 20070404
  Transmission Date: 20071010
  Serious: Yes (Other)
  Sender: FDA-Public Use
  Company Number: None

PATIENT
  Sex: Male
  Weight: 48.3 kg

DRUGS (4)
  1. ZOSYN [Suspect]
     Indication: APPENDICEAL ABSCESS
     Dosage: 4.5GM EVERY 8 HOURS IV BOLUS
     Route: 040
     Dates: start: 20070322, end: 20070329
  2. ZOSYN [Suspect]
     Indication: PSEUDOMONAS INFECTION
     Dosage: 4.5GM EVERY 8 HOURS IV BOLUS
     Route: 040
     Dates: start: 20070322, end: 20070329
  3. ZOSYN [Suspect]
     Indication: STREPTOCOCCAL INFECTION
     Dosage: 4.5GM EVERY 8 HOURS IV BOLUS
     Route: 040
     Dates: start: 20070322, end: 20070329
  4. ACETAMINOPHEN [Concomitant]

REACTIONS (1)
  - WHITE BLOOD CELL COUNT DECREASED [None]
